FAERS Safety Report 7604845-6 (Version None)
Quarter: 2011Q3

REPORT INFORMATION
  Report Type: 
  Country: None (occurrence: None)
  Receive Date: 20110712
  Receipt Date: 20110627
  Transmission Date: 20111222
  Serious: Yes (Hospitalization)
  Sender: FDA-Public Use
  Company Number: US-AMGEN-USASP2011032923

PATIENT
  Age: 49 Year
  Sex: Female

DRUGS (4)
  1. STELARA [Concomitant]
  2. ENBREL [Suspect]
     Indication: PSORIATIC ARTHROPATHY
     Dosage: 50 MG, QWK
     Dates: start: 20010101, end: 20110603
  3. ENBREL [Suspect]
     Indication: PSORIASIS
  4. SIMPONI [Concomitant]

REACTIONS (5)
  - DEHYDRATION [None]
  - DRUG INEFFECTIVE [None]
  - GENERALISED OEDEMA [None]
  - PSORIATIC ARTHROPATHY [None]
  - PSORIASIS [None]
